FAERS Safety Report 7395388-6 (Version None)
Quarter: 2011Q2

REPORT INFORMATION
  Report Type: 
  Country: None (occurrence: None)
  Receive Date: 20110405
  Receipt Date: 20110322
  Transmission Date: 20111010
  Serious: Yes (Hospitalization)
  Sender: FDA-Public Use
  Company Number: IT-JNJFOC-20110309520

PATIENT
  Age: 76 Year
  Sex: Female

DRUGS (10)
  1. ENAPREN [Suspect]
     Indication: CARDIAC DISORDER
     Route: 048
  2. SANDIMMUNE [Concomitant]
     Route: 048
  3. METHOTREXATE TEVA [Concomitant]
     Route: 058
  4. FOLINA [Concomitant]
  5. PAROL [Concomitant]
  6. REMICADE [Suspect]
     Route: 042
  7. AMIODARONE HCL [Concomitant]
     Indication: ATRIAL FIBRILLATION
  8. BISOPROLOL FUMARATE [Concomitant]
  9. REMICADE [Suspect]
     Indication: PSORIATIC ARTHROPATHY
     Route: 042
  10. LYRICA [Concomitant]

REACTIONS (4)
  - ANGIOEDEMA [None]
  - OEDEMA PERIPHERAL [None]
  - CHEST PAIN [None]
  - ERYTHEMA [None]
